FAERS Safety Report 4351411-4 (Version None)
Quarter: 2004Q2

REPORT INFORMATION
  Report Type: 
  Country: None (occurrence: None)
  Receive Date: 20040428
  Receipt Date: 20040408
  Transmission Date: 20050107
  Serious: Yes (Hospitalization)
  Sender: FDA-Public Use
  Company Number: USA040464524

PATIENT
  Age: 33 Year
  Sex: Female
  Weight: 28 kg

DRUGS (7)
  1. SYMBYAX [Suspect]
     Dosage: 1 DSG FORM/1 AT BEDTIME
     Dates: start: 20040304, end: 20040404
  2. REGLAN [Concomitant]
  3. NEXIUM [Concomitant]
  4. NYSTATIN [Concomitant]
  5. ROBITUSSIN (GUAIFENESIN) [Concomitant]
  6. PSEUDOEPHEDRINE HCL [Concomitant]
  7. ADVAIR DISKUS 100/50 [Concomitant]

REACTIONS (7)
  - BURNING SENSATION [None]
  - CONVULSION [None]
  - DEPRESSED LEVEL OF CONSCIOUSNESS [None]
  - MUSCLE SPASMS [None]
  - PARAESTHESIA [None]
  - RESTLESS LEGS SYNDROME [None]
  - TREMOR [None]
